FAERS Safety Report 19592599 (Version 1)
Quarter: 2021Q3

REPORT INFORMATION
  Report Type: Spontaneous
  Country: US (occurrence: US)
  Receive Date: 20210721
  Receipt Date: 20210721
  Transmission Date: 20211014
  Serious: No
  Sender: FDA-Public Use
  Company Number: None

PATIENT
  Age: 20 Year
  Sex: Male
  Weight: 79.2 kg

DRUGS (2)
  1. DIPHENHYDRAMINE 50MG/ML [Concomitant]
     Active Substance: DIPHENHYDRAMINE
     Dates: start: 20210614, end: 20210614
  2. PENTAMIDINE [Suspect]
     Active Substance: PENTAMIDINE
     Dosage: ?          OTHER FREQUENCY:ONCE;?
     Route: 041
     Dates: start: 20210614, end: 20210614

REACTIONS (1)
  - Cough [None]

NARRATIVE: CASE EVENT DATE: 20210614
